FAERS Safety Report 6957405-4 (Version None)
Quarter: 2010Q3

REPORT INFORMATION
  Report Type: 
  Country: None (occurrence: None)
  Receive Date: 20100826
  Receipt Date: 20100813
  Transmission Date: 20110219
  Serious: Yes (Hospitalization)
  Sender: FDA-Public Use
  Company Number: 2010P1000847

PATIENT
  Age: 49 Year
  Sex: Female

DRUGS (5)
  1. BACTRIM DS [Suspect]
     Indication: STAPHYLOCOCCAL INFECTION
     Dosage: X1; PO
     Route: 048
     Dates: start: 20100606, end: 20100606
  2. REBIF [Suspect]
     Indication: MULTIPLE SCLEROSIS
     Dosage: 44 MCG; TIW; SC
     Route: 058
     Dates: start: 20090825, end: 20100604
  3. AMYTRIPTYLINE [Concomitant]
  4. SOMA [Concomitant]
  5. ASPIRIN [Concomitant]

REACTIONS (5)
  - BLISTER [None]
  - DRUG HYPERSENSITIVITY [None]
  - GENITAL INFECTION BACTERIAL [None]
  - STAPHYLOCOCCAL INFECTION [None]
  - WOUND [None]
